FAERS Safety Report 5117623-7 (Version None)
Quarter: 2006Q3

REPORT INFORMATION
  Report Type: 
  Country: None (occurrence: None)
  Receive Date: 20060926
  Receipt Date: 20060908
  Transmission Date: 20061208
  Serious: Yes (Hospitalization, Other)
  Sender: FDA-Public Use
  Company Number: US200609002385

PATIENT
  Sex: Female

DRUGS (2)
  1. FORTEO [Suspect]
     Indication: OSTEOPOROSIS
     Dates: start: 20060525
  2. FORTEO PEN (FORTEO PEN) PEN, DISOPABLE [Concomitant]

REACTIONS (2)
  - SPINAL OPERATION [None]
  - SURGICAL PROCEDURE REPEATED [None]
